FAERS Safety Report 18312828 (Version 7)
Quarter: 2020Q4

REPORT INFORMATION
  Report Type: Report from Study
  Country: US (occurrence: US)
  Receive Date: 20200925
  Receipt Date: 20201122
  Transmission Date: 20210113
  Serious: Yes (Other)
  Sender: FDA-Public Use
  Company Number: NVSC2020US261458

PATIENT
  Sex: Male

DRUGS (1)
  1. COSENTYX [Suspect]
     Active Substance: SECUKINUMAB
     Indication: PRODUCT USED FOR UNKNOWN INDICATION
     Dosage: UNK
     Route: 065

REACTIONS (8)
  - Haemorrhage [Unknown]
  - Pain [Unknown]
  - Pruritus [Unknown]
  - Skin irritation [Unknown]
  - Skin haemorrhage [Unknown]
  - Skin laceration [Unknown]
  - Product dose omission issue [Unknown]
  - Drug ineffective [Unknown]
